FAERS Safety Report 21725849 (Version 2)
Quarter: 2022Q4

REPORT INFORMATION
  Report Type: Other
  Country: US (occurrence: None)
  Receive Date: 20221214
  Receipt Date: 20221220
  Transmission Date: 20230112
  Serious: Yes (Other)
  Sender: FDA-Public Use
  Company Number: US-ROCHE-3234028

PATIENT
  Age: 37 Year
  Sex: Female

DRUGS (1)
  1. ENSPRYNG [Suspect]
     Active Substance: SATRALIZUMAB-MWGE
     Indication: Neuromyelitis optica spectrum disorder
     Dosage: DOSE WAS 120 (UNIT NOT REPORTED), GIVEN EVERY 2 WEEKS, AND THEN EVERY 4 WEEKS THEREAFTER.
     Route: 065
     Dates: start: 20220430

REACTIONS (1)
  - Renal impairment [Unknown]
